FAERS Safety Report 9270037 (Version 1)
Quarter: 2013Q2

REPORT INFORMATION
  Report Type: Spontaneous
  Country: US (occurrence: US)
  Receive Date: 20130503
  Receipt Date: 20130503
  Transmission Date: 20140414
  Serious: No
  Sender: FDA-Public Use
  Company Number: US-ASTRAZENECA-2013SE26889

PATIENT
  Age: 80 Year
  Sex: Female

DRUGS (1)
  1. FASLODEX [Suspect]
     Dosage: UNK MONTH
     Route: 030

REACTIONS (3)
  - Chills [Unknown]
  - Feeling of body temperature change [Unknown]
  - Urine odour abnormal [Unknown]
